FAERS Safety Report 8854034 (Version 1)
Quarter: 2012Q4

REPORT INFORMATION
  Report Type: 
  Country: BR (occurrence: BR)
  Receive Date: 20121022
  Receipt Date: 20121022
  Transmission Date: 20130627
  Serious: Yes (Other)
  Sender: FDA-Public Use
  Company Number: PHHY2012BR093623

PATIENT
  Sex: Female
  Weight: 70 kg

DRUGS (6)
  1. DIOVAN HCT [Suspect]
     Indication: HYPERTENSION
     Dosage: 1 DF (160/12.5 mg), A day
     Route: 048
     Dates: start: 201204
  2. ATENOLOL [Concomitant]
     Indication: HYPERTENSION
     Dosage: 1 DF (50 mg), A day
  3. GLIBENCLAMIDE [Concomitant]
     Indication: DIABETES MELLITUS
     Dosage: 1 DF (5 mg), A day
     Route: 048
  4. METFORMIN [Concomitant]
     Indication: DIABETES MELLITUS
     Dosage: 1 DF (500 mg), A day
     Route: 048
  5. ROXFLAN [Concomitant]
     Indication: HYPERTENSION
     Dosage: 1 DF (5 mg), A day
     Route: 048
  6. AAS [Concomitant]
     Indication: ANTICOAGULANT THERAPY
     Dosage: 1 DF (100 mg), A day
     Route: 048
     Dates: start: 201208

REACTIONS (2)
  - Convulsion [Recovered/Resolved]
  - Salivary hypersecretion [Not Recovered/Not Resolved]
